FAERS Safety Report 8847663 (Version 1)
Quarter: 2012Q4

REPORT INFORMATION
  Report Type: Report from Study
  Country: AU (occurrence: AU)
  Receive Date: 20121018
  Receipt Date: 20121018
  Transmission Date: 20130627
  Serious: Yes (Disabling, Other)
  Sender: FDA-Public Use
  Company Number: AU-ROCHE-1144297

PATIENT
  Sex: Female

DRUGS (14)
  1. TOCILIZUMAB [Suspect]
     Indication: RHEUMATOID ARTHRITIS
     Route: 042
     Dates: start: 20110110
  2. METHOTREXATE [Concomitant]
     Indication: ARTHRITIS
     Route: 048
  3. LIPITOR [Concomitant]
     Indication: BLOOD CHOLESTEROL
     Route: 048
  4. PREDNISOLON [Concomitant]
     Indication: ARTHRALGIA
     Route: 048
  5. PREDNISOLON [Concomitant]
     Route: 048
  6. MEGAFOL [Concomitant]
     Route: 065
  7. NEXIUM [Concomitant]
     Route: 065
  8. RANI 2 [Concomitant]
     Route: 065
  9. CARTIA (AUSTRALIA) [Concomitant]
     Route: 065
  10. ENDEP [Concomitant]
     Route: 065
  11. OSTEOVIT (CALCIUM/VIT D) [Concomitant]
     Route: 065
  12. COVERSYL [Concomitant]
  13. TEMAZE [Concomitant]
     Dosage: PRN
     Route: 065
  14. MOBIC [Concomitant]

REACTIONS (3)
  - Arthralgia [Recovering/Resolving]
  - Coronary artery stenosis [Unknown]
  - Blister [Recovering/Resolving]
